FAERS Safety Report 17370802 (Version 2)
Quarter: 2020Q1

REPORT INFORMATION
  Report Type: Spontaneous
  Country: US (occurrence: US)
  Receive Date: 20200205
  Receipt Date: 20200220
  Transmission Date: 20200409
  Serious: Yes (Other)
  Sender: FDA-Public Use
  Company Number: US-AUROBINDO-AUR-APL-2019-106125

PATIENT
  Sex: Female

DRUGS (3)
  1. CICLOPIROX. [Concomitant]
     Active Substance: CICLOPIROX
     Indication: NAIL OPERATION
     Dosage: UNK
     Route: 065
  2. ARMOUR THYROID [Concomitant]
     Active Substance: THYROID, PORCINE
     Indication: PRODUCT USED FOR UNKNOWN INDICATION
     Dosage: 45 MILLIGRAM, ONCE A DAY
     Route: 065
  3. DEXAMETHASONE INJECTION [Suspect]
     Active Substance: DEXAMETHASONE
     Indication: PRODUCT USED FOR UNKNOWN INDICATION
     Dosage: SHE TOOK THE MEDICATION 08 TO 10 TIMES
     Route: 065
     Dates: start: 20191008, end: 201910

REACTIONS (8)
  - Immunodeficiency [Unknown]
  - Thyroid disorder [Not Recovered/Not Resolved]
  - Sinusitis [Unknown]
  - Ill-defined disorder [Unknown]
  - Taste disorder [Not Recovered/Not Resolved]
  - Tongue disorder [Not Recovered/Not Resolved]
  - Dyspepsia [Not Recovered/Not Resolved]
  - Abdominal discomfort [Unknown]
